FAERS Safety Report 4454665-9 (Version None)
Quarter: 2004Q3

REPORT INFORMATION
  Report Type: 
  Country: None (occurrence: None)
  Receive Date: 20040920
  Receipt Date: 20040920
  Transmission Date: 20050211
  Serious: Yes (Other)
  Sender: FDA-Public Use
  Company Number: None

PATIENT
  Sex: Female
  Weight: 79.3795 kg

DRUGS (9)
  1. EFFEXOR XR [Suspect]
     Indication: DEPRESSION
     Dosage: 75 MG 2 / DAY ORAL
     Route: 048
     Dates: start: 19960101, end: 20040919
  2. EFFEXOR XR [Suspect]
     Indication: PANIC ATTACK
     Dosage: 75 MG 2 / DAY ORAL
     Route: 048
     Dates: start: 19960101, end: 20040919
  3. EFFEXOR XR [Suspect]
     Indication: SOCIAL PHOBIA
     Dosage: 75 MG 2 / DAY ORAL
     Route: 048
     Dates: start: 19960101, end: 20040919
  4. NEURONTIN [Suspect]
     Indication: NEURALGIA
     Dosage: 200 MG 3 / DAY ORAL
     Route: 048
     Dates: start: 20040908, end: 20040919
  5. CLONAZEPAM [Concomitant]
  6. OMEPRAZOLE [Concomitant]
  7. LIPITOR [Concomitant]
  8. LISINOPRIL [Concomitant]
  9. ZESTRIL [Concomitant]

REACTIONS (7)
  - ARTHRITIS [None]
  - CARPAL TUNNEL SYNDROME [None]
  - DRUG INTERACTION [None]
  - NEURALGIA [None]
  - PANIC REACTION [None]
  - SUICIDAL IDEATION [None]
  - THINKING ABNORMAL [None]
